FAERS Safety Report 8282549-7 (Version None)
Quarter: 2012Q2

REPORT INFORMATION
  Report Type: 
  Country: None (occurrence: None)
  Receive Date: 20120413
  Receipt Date: 20120402
  Transmission Date: 20120825
  Serious: Yes (Hospitalization)
  Sender: FDA-Public Use
  Company Number: FR-PFIZER INC-2012082547

PATIENT
  Age: 69 Year
  Sex: Male
  Weight: 83 kg

DRUGS (4)
  1. FLUDARABINE PHOSPHATE [Suspect]
     Indication: MANTLE CELL LYMPHOMA
     Dosage: UNK
     Dates: start: 20120117, end: 20120119
  2. CYCLOPHOSPHAMIDE [Suspect]
     Indication: MANTLE CELL LYMPHOMA
     Dosage: UNK
     Dates: start: 20120117, end: 20120119
  3. RITUXIMAB [Suspect]
     Indication: MANTLE CELL LYMPHOMA
     Dosage: UNK
     Dates: start: 20120117, end: 20120119
  4. TORISEL [Suspect]
     Indication: MANTLE CELL LYMPHOMA
     Dosage: 25 MG, 1X/DAY
     Dates: start: 20120118, end: 20120131

REACTIONS (11)
  - DIARRHOEA [None]
  - DECREASED APPETITE [None]
  - SUPERINFECTION [None]
  - GENERAL PHYSICAL HEALTH DETERIORATION [None]
  - NAUSEA [None]
  - LYMPHADENOPATHY [None]
  - BRONCHIECTASIS [None]
  - WEIGHT DECREASED [None]
  - VOMITING [None]
  - SINUSITIS [None]
  - ASTHENIA [None]
